FAERS Safety Report 7714821-0 (Version None)
Quarter: 2011Q3

REPORT INFORMATION
  Report Type: 
  Country: None (occurrence: None)
  Receive Date: 20110829
  Receipt Date: 20110823
  Transmission Date: 20111222
  Serious: Yes (Death, Other)
  Sender: FDA-Public Use
  Company Number: KR-ASTELLAS-2011US005307

PATIENT
  Sex: Female

DRUGS (5)
  1. GEMCITABINE [Suspect]
     Indication: PANCREATIC CARCINOMA
     Dosage: 1510 MG, TOTAL DOSE
     Route: 042
     Dates: start: 20100625, end: 20100625
  2. GEMCITABINE [Suspect]
     Dosage: 1480 MG, 3X 3 WEEKS
     Route: 042
     Dates: start: 20100707, end: 20100805
  3. DEXAMETHASONE [Concomitant]
     Indication: PRODUCT USED FOR UNKNOWN INDICATION
     Dosage: UNK
     Route: 065
     Dates: start: 20100623, end: 20100625
  4. RANITIDINE [Concomitant]
     Indication: PRODUCT USED FOR UNKNOWN INDICATION
     Dosage: UNK
     Route: 065
     Dates: start: 20100701, end: 20100816
  5. ERLOTINIB HYDROCHLORIDE [Suspect]
     Indication: PANCREATIC CARCINOMA
     Dosage: 100 MG, UNKNOWN/D
     Route: 048
     Dates: start: 20100625, end: 20100816

REACTIONS (2)
  - PULMONARY ARTERY THROMBOSIS [None]
  - PNEUMONIA [None]
